FAERS Safety Report 4445765-8 (Version None)
Quarter: 2004Q3

REPORT INFORMATION
  Report Type: 
  Country: None (occurrence: None)
  Receive Date: 20040908
  Receipt Date: 20040908
  Transmission Date: 20050211
  Serious: No
  Sender: FDA-Public Use
  Company Number: None

PATIENT
  Age: 58 Year
  Sex: Female
  Weight: 75.9 kg

DRUGS (6)
  1. ZOSYN [Suspect]
     Indication: OSTEOMYELITIS
     Dosage: 3.375 GR IV Q6 (2/24 3 T18), 3.37 GR IV Q 8 H (3/18, 3/24)
     Route: 042
     Dates: start: 20040224, end: 20040324
  2. GABAPENTIN [Concomitant]
  3. FUROSEMIDE [Concomitant]
  4. VALSARTAN [Concomitant]
  5. ASPIRIN [Concomitant]
  6. ISORDIL [Concomitant]

REACTIONS (4)
  - MENTAL STATUS CHANGES [None]
  - MUSCLE TWITCHING [None]
  - NEPHRITIS INTERSTITIAL [None]
  - RENAL FAILURE ACUTE [None]
